FAERS Safety Report 5050699-4 (Version None)
Quarter: 2006Q3

REPORT INFORMATION
  Report Type: 
  Country: None (occurrence: None)
  Receive Date: 20060707
  Receipt Date: 20060630
  Transmission Date: 20061208
  Serious: Yes (Hospitalization)
  Sender: FDA-Public Use
  Company Number: CAWYE980804JUL06

PATIENT
  Age: 11 Year
  Sex: Male

DRUGS (20)
  1. RAPAMUNE [Suspect]
     Indication: PROPHYLAXIS AGAINST TRANSPLANT REJECTION
     Dosage: SEE IMAGE
     Route: 048
     Dates: start: 20041005, end: 20041015
  2. RAPAMUNE [Suspect]
     Indication: PROPHYLAXIS AGAINST TRANSPLANT REJECTION
     Dosage: SEE IMAGE
     Route: 048
     Dates: start: 20041015, end: 20041029
  3. RAPAMUNE [Suspect]
     Indication: PROPHYLAXIS AGAINST TRANSPLANT REJECTION
     Dosage: SEE IMAGE
     Route: 048
     Dates: start: 20041029, end: 20041105
  4. RAPAMUNE [Suspect]
     Indication: PROPHYLAXIS AGAINST TRANSPLANT REJECTION
     Dosage: SEE IMAGE
     Route: 048
     Dates: start: 20041105, end: 20041211
  5. RAPAMUNE [Suspect]
     Indication: PROPHYLAXIS AGAINST TRANSPLANT REJECTION
     Dosage: SEE IMAGE
     Route: 048
     Dates: start: 20041211, end: 20050211
  6. RAPAMUNE [Suspect]
     Indication: PROPHYLAXIS AGAINST TRANSPLANT REJECTION
     Dosage: SEE IMAGE
     Route: 048
     Dates: start: 20050211, end: 20050225
  7. RAPAMUNE [Suspect]
     Indication: PROPHYLAXIS AGAINST TRANSPLANT REJECTION
     Dosage: SEE IMAGE
     Route: 048
     Dates: start: 20050225, end: 20050506
  8. RAPAMUNE [Suspect]
     Indication: PROPHYLAXIS AGAINST TRANSPLANT REJECTION
     Dosage: SEE IMAGE
     Route: 048
     Dates: start: 20050506, end: 20060131
  9. RAPAMUNE [Suspect]
     Indication: PROPHYLAXIS AGAINST TRANSPLANT REJECTION
     Dosage: SEE IMAGE
     Route: 048
     Dates: start: 20060131
  10. PREDNISONE TAB [Concomitant]
  11. TACROLIMUS (TACROLIMUS) [Concomitant]
  12. INSULIN [Concomitant]
  13. CLOBAZAM (CLOBAZAM) [Concomitant]
  14. SODIUM CHLORIDE [Concomitant]
  15. LOSEC (OMEPRAZOLE) [Concomitant]
  16. ARANESP [Concomitant]
  17. SODIUM BICARBONATE IN PLASTIC CONTAINER [Concomitant]
  18. ZINC SULFATE (ZINC SULFATE) [Concomitant]
  19. LOSARTAN POTASSIUM [Concomitant]
  20. CALCITROL (CALCIUM CARBONATE/ERGOCALCIFEROL/RETINOL) [Concomitant]

REACTIONS (1)
  - KIDNEY TRANSPLANT REJECTION [None]
